FAERS Safety Report 24358873 (Version 2)
Quarter: 2024Q4

REPORT INFORMATION
  Report Type: Report from Study
  Country: US (occurrence: US)
  Receive Date: 20240924
  Receipt Date: 20241023
  Transmission Date: 20250114
  Serious: Yes (Hospitalization, Other)
  Sender: BAYER HEALTHCARE PHARMACEUTICALS INC.
  Company Number: US-BAYER-2024A133505

PATIENT
  Age: 46 Year
  Sex: Male
  Weight: 102.95 kg

DRUGS (20)
  1. ADEMPAS [Suspect]
     Active Substance: RIOCIGUAT
     Indication: Pulmonary arterial hypertension
     Dosage: UNK
     Dates: start: 20240627
  2. ADEMPAS [Suspect]
     Active Substance: RIOCIGUAT
     Indication: Pulmonary arterial hypertension
     Dosage: 1.5 MG, TID
     Route: 048
  3. ADEMPAS [Suspect]
     Active Substance: RIOCIGUAT
     Indication: Pulmonary arterial hypertension
     Dosage: 2 MG, TID
     Route: 048
  4. EZETIMIBE [Concomitant]
     Active Substance: EZETIMIBE
  5. PREDNISONE [Concomitant]
     Active Substance: PREDNISONE
  6. ROSUVASTATIN CALCIUM [Concomitant]
     Active Substance: ROSUVASTATIN CALCIUM
  7. CINACALCET HYDROCHLORIDE [Concomitant]
     Active Substance: CINACALCET HYDROCHLORIDE
  8. MAGNESIUM [Concomitant]
     Active Substance: MAGNESIUM
  9. DOXYCYCLINE HYCLATE [Concomitant]
     Active Substance: DOXYCYCLINE HYCLATE
  10. ALBUTEROL SULFATE [Concomitant]
     Active Substance: ALBUTEROL SULFATE
  11. ELIQUIS [Concomitant]
     Active Substance: APIXABAN
  12. METOPROLOL SUCCINATE [Concomitant]
     Active Substance: METOPROLOL SUCCINATE
  13. METFORMIN HYDROCHLORIDE [Concomitant]
     Active Substance: METFORMIN HYDROCHLORIDE
  14. OXYGEN [Concomitant]
     Active Substance: OXYGEN
  15. FAMOTIDINE [Concomitant]
     Active Substance: FAMOTIDINE
  16. ASMANEX [Concomitant]
     Active Substance: MOMETASONE FUROATE
  17. TACROLIMUS [Concomitant]
     Active Substance: TACROLIMUS
  18. ASPIRIN [Concomitant]
     Active Substance: ASPIRIN
  19. LOSARTAN POTASSIUM [Concomitant]
     Active Substance: LOSARTAN POTASSIUM
  20. MYCOPHENOLIC ACID [Concomitant]
     Active Substance: MYCOPHENOLIC ACID

REACTIONS (8)
  - Haematoma [None]
  - Lung disorder [Not Recovered/Not Resolved]
  - Contusion [None]
  - Lung disorder [Not Recovered/Not Resolved]
  - Lung neoplasm malignant [None]
  - Increased tendency to bruise [None]
  - Limb injury [Not Recovered/Not Resolved]
  - Dyspnoea [None]

NARRATIVE: CASE EVENT DATE: 20240401
